FAERS Safety Report 7486679-9 (Version None)
Quarter: 2011Q2

REPORT INFORMATION
  Report Type: 
  Country: None (occurrence: None)
  Receive Date: 20110517
  Receipt Date: 20100818
  Transmission Date: 20111010
  Serious: No
  Sender: FDA-Public Use
  Company Number: US-NOVEN-ALL1-2010-04041

PATIENT
  Age: 9 Month
  Sex: Male
  Weight: 8.163 kg

DRUGS (2)
  1. DAYTRANA [Suspect]
     Dosage: UNK, UNKNOWN
     Route: 048
  2. ANTIBIOTICS [Concomitant]
     Dosage: UNK, UNKNOWN
     Route: 048
     Dates: start: 20100725

REACTIONS (3)
  - ACCIDENTAL EXPOSURE [None]
  - DYSPNOEA [None]
  - PRODUCT QUALITY ISSUE [None]
